FAERS Safety Report 7312650-3 (Version None)
Quarter: 2011Q1

REPORT INFORMATION
  Report Type: 
  Country: None (occurrence: None)
  Receive Date: 20110224
  Receipt Date: 20101216
  Transmission Date: 20110831
  Serious: No
  Sender: FDA-Public Use
  Company Number: US-MYLANLABS-2010S1021833

PATIENT
  Age: 61 Year
  Sex: Female

DRUGS (6)
  1. ASA [Concomitant]
     Indication: CARDIAC DISORDER
  2. LANSOPRAZOLE [Suspect]
     Indication: GASTROOESOPHAGEAL REFLUX DISEASE
     Route: 048
     Dates: start: 20100501, end: 20100912
  3. NORCO [Concomitant]
     Indication: PAIN
     Dosage: 10/325MG
  4. METOPROLOL SUCCINATE [Concomitant]
     Indication: BLOOD PRESSURE
  5. ACETAMINOPHEN [Concomitant]
  6. SOMA [Concomitant]
     Indication: MUSCLE SPASMS

REACTIONS (3)
  - GASTROOESOPHAGEAL REFLUX DISEASE [None]
  - DRUG INEFFECTIVE [None]
  - VERTIGO [None]
